FAERS Safety Report 6286666-2 (Version None)
Quarter: 2009Q3

REPORT INFORMATION
  Report Type: 
  Country: None (occurrence: None)
  Receive Date: 20090728
  Receipt Date: 20090722
  Transmission Date: 20100115
  Serious: Yes (Death, Other)
  Sender: FDA-Public Use
  Company Number: PHEH2008US11595

PATIENT
  Sex: Female

DRUGS (5)
  1. GLEEVEC [Suspect]
     Indication: CHRONIC MYELOID LEUKAEMIA
     Dosage: 400 MG, QD
     Route: 048
     Dates: start: 20070901
  2. GLEEVEC [Suspect]
     Dosage: 200 MG, UNK
     Route: 048
  3. GLEEVEC [Suspect]
     Dosage: 400MG ALTERNATED WITH 200MG
     Route: 048
     Dates: start: 20080623
  4. GLEEVEC [Suspect]
     Dosage: 400 MG/DAY
  5. OMEPRAZOLE [Concomitant]

REACTIONS (16)
  - ANAEMIA [None]
  - ASTHENIA [None]
  - CHRONIC MYELOID LEUKAEMIA [None]
  - DEATH [None]
  - DECREASED APPETITE [None]
  - LEUKOCYTOSIS [None]
  - MALAISE [None]
  - MALIGNANT NEOPLASM PROGRESSION [None]
  - MOTOR DYSFUNCTION [None]
  - NAUSEA [None]
  - PALLOR [None]
  - PANCYTOPENIA [None]
  - THROMBOCYTOPENIA [None]
  - VOMITING [None]
  - WHITE BLOOD CELL COUNT DECREASED [None]
  - WHITE BLOOD CELL COUNT INCREASED [None]
